FAERS Safety Report 9128359 (Version 2)
Quarter: 2013Q3

REPORT INFORMATION
  Report Type: Report from Study
  Country: BR (occurrence: BR)
  Receive Date: 20130228
  Receipt Date: 20130923
  Transmission Date: 20140515
  Serious: Yes (Other)
  Sender: FDA-Public Use
  Company Number: BR-SANOFI-AVENTIS-2013SA017638

PATIENT
  Sex: Female
  Weight: 54 kg

DRUGS (10)
  1. LANTUS [Suspect]
     Indication: TYPE 2 DIABETES MELLITUS
     Route: 058
     Dates: start: 2011
  2. APIDRA SOLOSTAR [Suspect]
     Indication: TYPE 2 DIABETES MELLITUS
     Route: 058
     Dates: start: 2011
  3. SOLOSTAR [Concomitant]
     Indication: DEVICE THERAPY
     Dosage: TAKEN FROM:1 YEAR
  4. CALTRATE [Concomitant]
     Indication: OSTEOPOROSIS
     Dosage: TAKEN FROM: ABOUT 10 YEARS?STRENGTH: 600MG
     Route: 048
  5. RISEDRONATE SODIUM [Concomitant]
     Indication: OSTEOPOROSIS
     Dosage: TAKEN FROM: ABOUT 8 YEARS
     Route: 048
  6. GLUCOSAMINE SULFATE W/CHONDROITIN [Concomitant]
     Indication: OSTEOPOROSIS
     Dosage: STRENGTH: 900MG
     Route: 048
  7. GLIFAGE [Concomitant]
     Indication: TYPE 2 DIABETES MELLITUS
     Dosage: STRENGTH:50MG
     Route: 048
  8. OMEPRAZOLE [Concomitant]
     Indication: ABDOMINAL DISCOMFORT
     Dosage: TAKEN: ABOUT 6 YEARS?STRENGTH: 20MG
     Route: 048
  9. ATENOLOL [Concomitant]
     Indication: HYPERTENSION
     Dosage: TAKEN FROM: MORE THAN 5 YEARS?STRENGTH: 50MG
     Route: 048
  10. OSTEONUTRI [Concomitant]
     Indication: OSTEOPOROSIS
     Route: 048

REACTIONS (5)
  - Blindness [Recovered/Resolved]
  - Injection site pain [Recovering/Resolving]
  - Blood glucose fluctuation [Recovered/Resolved]
  - Dizziness [Unknown]
  - Blood glucose increased [Recovering/Resolving]
